FAERS Safety Report 6496402-2 (Version None)
Quarter: 2009Q4

REPORT INFORMATION
  Report Type: 
  Country: None (occurrence: None)
  Receive Date: 20091214
  Receipt Date: 20091204
  Transmission Date: 20100525
  Serious: Yes (Other)
  Sender: FDA-Public Use
  Company Number: US-ABBOTT-09P-163-0612763-00

PATIENT
  Age: 41 Year
  Sex: Male

DRUGS (1)
  1. HUMIRA [Suspect]
     Indication: PSORIASIS
     Dosage: UNKNOWN
     Dates: start: 20090401, end: 20090701

REACTIONS (8)
  - DYSPNOEA [None]
  - HEADACHE [None]
  - INVESTIGATION ABNORMAL [None]
  - LYMPHADENOPATHY [None]
  - MASS [None]
  - MEDIASTINAL DISORDER [None]
  - PAIN [None]
  - PYREXIA [None]
